FAERS Safety Report 20873002 (Version 2)
Quarter: 2022Q2

REPORT INFORMATION
  Report Type: Spontaneous
  Country: IN (occurrence: IN)
  Receive Date: 20220525
  Receipt Date: 20220628
  Transmission Date: 20220720
  Serious: Yes (Hospitalization)
  Sender: FDA-Public Use
  Company Number: IN-PFIZER INC-2021187190

PATIENT
  Age: 39 Year
  Sex: Female

DRUGS (22)
  1. SUTENT [Suspect]
     Active Substance: SUNITINIB MALATE
     Indication: Gastrointestinal stromal tumour
     Dosage: 25 MG, 1X/DAY
     Route: 048
     Dates: start: 20200713
  2. SUTENT [Suspect]
     Active Substance: SUNITINIB MALATE
     Dosage: 50 MG, CYCLIC (ONCE DAILY FOR 2 WEEKS ON AND 1 WEEK OFF)
     Route: 048
     Dates: start: 20200713
  3. SUTENT [Suspect]
     Active Substance: SUNITINIB MALATE
     Dosage: 50 MG, CYCLIC (2 WEEKS ON AND 1 WEEK OFF)
     Route: 048
     Dates: start: 20200803
  4. SUTENT [Suspect]
     Active Substance: SUNITINIB MALATE
     Dosage: 50 MG, CYCLIC (2 WEEKS ON AND 1 WEEK OFF))
     Route: 048
     Dates: start: 202008
  5. SUTENT [Suspect]
     Active Substance: SUNITINIB MALATE
     Dosage: 50 UNK
     Route: 048
  6. DEXAMETHASONE SODIUM PHOSPHATE [Concomitant]
     Active Substance: DEXAMETHASONE SODIUM PHOSPHATE
     Dosage: 4 MG, 2X/DAY (1-1-0 X 3DAYS)
  7. DEXAMETHASONE SODIUM PHOSPHATE [Concomitant]
     Active Substance: DEXAMETHASONE SODIUM PHOSPHATE
     Dosage: 4 MG, 1X/DAY (1-0-0 X 3DAYS )
  8. METOCLOPRAMIDE HYDROCHLORIDE [Concomitant]
     Active Substance: METOCLOPRAMIDE HYDROCHLORIDE
     Dosage: 10 MG, 2X/DAY (1-0-1 X 21DAYS)
  9. DOMPERIDONE\ESOMEPRAZOLE MAGNESIUM [Concomitant]
     Active Substance: DOMPERIDONE\ESOMEPRAZOLE MAGNESIUM
     Dosage: 40 MG, 2X/DAY (1-0-1 X 2 WEEKS)
  10. OLANZAPINE [Concomitant]
     Active Substance: OLANZAPINE
     Dosage: 10 MG, 1X/DAY (0-0-1 X 3WEEKS)
  11. CLONAZEPAM [Concomitant]
     Active Substance: CLONAZEPAM
     Dosage: 0.5 MG, 1X/DAY (0-0-1/2 X 3WEEKS)
  12. GERBISA [Concomitant]
     Dosage: 2 DF, AS NEEDED (5 MG 2HS/SOS)
  13. RUPATCH [Concomitant]
     Dosage: 10 MG, WEEKLY X 3 WEEKS
  14. RUPATCH [Concomitant]
     Dosage: 10 MG (3)
  15. RUPATCH [Concomitant]
     Dosage: 10 MG (2)
  16. RUPATCH [Concomitant]
     Dosage: 10 MG (1)
  17. RUPATCH [Concomitant]
     Dosage: 10 MG (5)
  18. ONDANSETRON HYDROCHLORIDE [Concomitant]
     Active Substance: ONDANSETRON HYDROCHLORIDE
     Dosage: 4 MG, 2X/DAY (1-0-1 X 2 WEEKS)
  19. OMNACORTIL [PREDNISOLONE] [Concomitant]
     Dosage: 10 MG, 3X/DAY (1-1-1 X 3 WEEKS)
  20. ULTRACET [Concomitant]
     Active Substance: ACETAMINOPHEN\TRAMADOL HYDROCHLORIDE
     Dosage: UNK 1-0-1 X 5DAYS
  21. NEOMOL [Concomitant]
     Dosage: 1 MG
     Route: 042
  22. DEFZA [Concomitant]
     Dosage: 6 MG,1-0-0 X3WKS

REACTIONS (11)
  - Vomiting [Recovered/Resolved]
  - Abdominal pain [Unknown]
  - Fatigue [Not Recovered/Not Resolved]
  - Hypotension [Unknown]
  - Weight decreased [Unknown]
  - Nausea [Unknown]
  - Decreased appetite [Not Recovered/Not Resolved]
  - Haematuria [Unknown]
  - Pulmonary mass [Unknown]
  - Pelvic cyst [Unknown]
  - Dehydration [Unknown]

NARRATIVE: CASE EVENT DATE: 20211111
